FAERS Safety Report 6534093-2 (Version None)
Quarter: 2010Q1

REPORT INFORMATION
  Report Type: 
  Country: None (occurrence: None)
  Receive Date: 20100112
  Receipt Date: 20100106
  Transmission Date: 20100710
  Serious: Yes (Hospitalization)
  Sender: FDA-Public Use
  Company Number: PHHY2010JP00697

PATIENT
  Age: 26 Year
  Sex: Female

DRUGS (4)
  1. CYCLOSPORINE [Suspect]
     Indication: HEPATITIS B
  2. METHYLPREDNISOLONE ACETATE [Concomitant]
     Indication: HEPATITIS B
     Dosage: 1000 MG, UNK
  3. ENTECAVIR [Concomitant]
  4. INTERFERON BETA [Concomitant]

REACTIONS (1)
  - PNEUMATOSIS INTESTINALIS [None]
